FAERS Safety Report 20207147 (Version 1)
Quarter: 2021Q4

REPORT INFORMATION
  Report Type: Spontaneous
  Country: CA (occurrence: CA)
  Receive Date: 20211220
  Receipt Date: 20211220
  Transmission Date: 20220303
  Serious: Yes (Death, Hospitalization)
  Sender: FDA-Public Use
  Company Number: CA-MYLANLABS-2021M1094193

PATIENT
  Age: 22 Year
  Sex: Female

DRUGS (7)
  1. ONDANSETRON [Suspect]
     Active Substance: ONDANSETRON
     Indication: Cannabinoid hyperemesis syndrome
     Dosage: 8 MILLIGRAM
     Route: 065
  2. HALOPERIDOL [Suspect]
     Active Substance: HALOPERIDOL
     Indication: Cannabinoid hyperemesis syndrome
     Dosage: UNK
     Route: 065
  3. OLANZAPINE [Suspect]
     Active Substance: OLANZAPINE
     Indication: Cannabinoid hyperemesis syndrome
     Dosage: 5 MILLIGRAM
     Route: 065
  4. GRAVOL [Concomitant]
     Active Substance: DIMENHYDRINATE
     Indication: Cannabinoid hyperemesis syndrome
     Dosage: 50 MILLIGRAM
     Route: 065
  5. LORAZEPAM [Concomitant]
     Active Substance: LORAZEPAM
     Indication: Cannabinoid hyperemesis syndrome
     Dosage: UNK
  6. SODIUM CHLORIDE [Concomitant]
     Active Substance: SODIUM CHLORIDE
     Indication: Drug therapy
     Dosage: UNK
     Route: 065
  7. POTASSIUM PHOSPHATE [Concomitant]
     Active Substance: POTASSIUM PHOSPHATE
     Indication: Drug therapy
     Dosage: 6.8 MILLIEQUIVALENT; ~THREE DOSES OVER THE COURSE OF THE AFTERNOON
     Route: 042

REACTIONS (5)
  - Torsade de pointes [Fatal]
  - Cardio-respiratory arrest [Fatal]
  - Myocardial reperfusion injury [Fatal]
  - Hypoxic-ischaemic encephalopathy [Fatal]
  - Brain death [Fatal]
